FAERS Safety Report 4656454-9 (Version None)
Quarter: 2005Q2

REPORT INFORMATION
  Report Type: 
  Country: None (occurrence: None)
  Receive Date: 20050504
  Receipt Date: 20050427
  Transmission Date: 20051028
  Serious: Yes (Life-Threatening)
  Sender: FDA-Public Use
  Company Number: 2005PK00219

PATIENT
  Age: 20 Year
  Sex: Female
  Weight: 62 kg

DRUGS (3)
  1. SEROQUEL [Suspect]
     Indication: PSYCHOTIC DISORDER
     Dosage: 600 MG DAILY PO
     Route: 048
     Dates: start: 20030929, end: 20031101
  2. CARBAMAZEPINE [Suspect]
     Indication: MANIA
     Dosage: 600 MG DAILY PO
     Route: 048
     Dates: start: 20031013, end: 20031101
  3. LORAZEPAM [Concomitant]

REACTIONS (4)
  - DRUG INEFFECTIVE [None]
  - DRUG INTERACTION [None]
  - PANCYTOPENIA [None]
  - TRANSAMINASES INCREASED [None]
